FAERS Safety Report 5359436-7 (Version None)
Quarter: 2007Q2

REPORT INFORMATION
  Report Type: 
  Country: None (occurrence: None)
  Receive Date: 20070615
  Receipt Date: 20070605
  Transmission Date: 20071010
  Serious: Yes (Other)
  Sender: FDA-Public Use
  Company Number: CA-PFIZER INC-2007043433

PATIENT
  Age: 80 Year
  Sex: Female

DRUGS (4)
  1. ACCURETIC [Suspect]
     Indication: HYPERTENSION
     Dosage: TEXT:10/12.5MG
     Route: 048
  2. SYNTHROID [Concomitant]
  3. CHYMOPAPAIN [Concomitant]
  4. PANTOPRAZOLE SODIUM [Concomitant]

REACTIONS (9)
  - BLOOD PRESSURE DECREASED [None]
  - BLOOD PRESSURE INCREASED [None]
  - HEADACHE [None]
  - INCREASED TENDENCY TO BRUISE [None]
  - INSOMNIA [None]
  - MALAISE [None]
  - NERVOUSNESS [None]
  - SKIN DISCOLOURATION [None]
  - TREMOR [None]
